FAERS Safety Report 4765036-X (Version None)
Quarter: 2005Q3

REPORT INFORMATION
  Report Type: 
  Country: None (occurrence: None)
  Receive Date: 20050907
  Receipt Date: 20050826
  Transmission Date: 20060218
  Serious: Yes (Hospitalization, Other)
  Sender: FDA-Public Use
  Company Number: KII-2005-0018386

PATIENT
  Age: 13 Month
  Sex: Female

DRUGS (2)
  1. MORPHINE SULFATE [Suspect]
     Indication: DRUG USE FOR UNKNOWN INDICATION
     Dosage: ORAL
     Route: 048
  2. LANOLIN (LANOLIN) [Suspect]
     Indication: RASH
     Dosage: TOPICAL
     Route: 061

REACTIONS (6)
  - ACCIDENTAL DRUG INTAKE BY CHILD [None]
  - APNOEA [None]
  - CYANOSIS [None]
  - RASH GENERALISED [None]
  - STRIDOR [None]
  - WHEEZING [None]
